FAERS Safety Report 11659234 (Version 1)
Quarter: 2015Q4

REPORT INFORMATION
  Report Type: Spontaneous
  Country: CO (occurrence: CO)
  Receive Date: 20151026
  Receipt Date: 20151026
  Transmission Date: 20160304
  Serious: Yes (Hospitalization, Other)
  Sender: FDA-Public Use
  Company Number: CO-AMGEN-COLSP2015110791

PATIENT
  Age: 86 Year
  Sex: Male

DRUGS (5)
  1. ONDANSETRON [Concomitant]
     Active Substance: ONDANSETRON
     Indication: CHEMOTHERAPY
     Dosage: 16 MG, QMO
     Route: 042
     Dates: start: 20150924, end: 20150924
  2. NEULASTA [Suspect]
     Active Substance: PEGFILGRASTIM
     Indication: NON-HODGKIN^S LYMPHOMA
     Dosage: 6 MG, QMO
     Route: 058
     Dates: start: 20150925
  3. CYCLOPHOSPHAMIDE. [Concomitant]
     Active Substance: CYCLOPHOSPHAMIDE
     Indication: CHEMOTHERAPY
     Dosage: 1 G, QMO
     Route: 042
     Dates: start: 20150924, end: 20150924
  4. VINCRISTINE [Concomitant]
     Active Substance: VINCRISTINE
     Indication: CHEMOTHERAPY
     Dosage: 2 MG, QMO
     Route: 042
     Dates: start: 20150924, end: 20150924
  5. DEXAMETHASONE. [Concomitant]
     Active Substance: DEXAMETHASONE
     Indication: CHEMOTHERAPY
     Dosage: 8 MG, QMO
     Route: 042
     Dates: start: 20150924, end: 20150924

REACTIONS (9)
  - Diarrhoea [Unknown]
  - Oral discomfort [Unknown]
  - Vomiting [Recovering/Resolving]
  - Abdominal sepsis [Unknown]
  - Nausea [Recovering/Resolving]
  - Haemoglobin abnormal [Unknown]
  - Agitation [Unknown]
  - Pulmonary sepsis [Unknown]
  - Abdominal pain [Recovering/Resolving]

NARRATIVE: CASE EVENT DATE: 2015
